FAERS Safety Report 5777196-2 (Version None)
Quarter: 2008Q2

REPORT INFORMATION
  Report Type: 
  Country: None (occurrence: None)
  Receive Date: 20080618
  Receipt Date: 20080606
  Transmission Date: 20081010
  Serious: Yes (Disabling)
  Sender: FDA-Public Use
  Company Number: GB-ELI_LILLY_AND_COMPANY-GB200806002036

PATIENT
  Age: 69 Year
  Sex: Female
  Weight: 93.4 kg

DRUGS (4)
  1. HUMALOG [Suspect]
     Indication: DIABETES MELLITUS
     Dosage: 76 IU, DAILY (1/D)
     Route: 058
     Dates: start: 20080128, end: 20080513
  2. PERINDOPRIL ERBUMINE [Concomitant]
     Dosage: 2 MG, 3/D
     Route: 048
  3. LOPERAMIDE HCL [Concomitant]
     Dosage: 2 MG, UNK
     Route: 048
  4. LEVOTHYROXINE SODIUM [Concomitant]
     Indication: HYPOTHYROIDISM
     Dosage: 150 UG, UNK
     Route: 048

REACTIONS (3)
  - DYSPNOEA [None]
  - RASH [None]
  - WHEEZING [None]
